FAERS Safety Report 6531398-6 (Version None)
Quarter: 2010Q1

REPORT INFORMATION
  Report Type: 
  Country: None (occurrence: None)
  Receive Date: 20100108
  Receipt Date: 20091123
  Transmission Date: 20100710
  Serious: No
  Sender: FDA-Public Use
  Company Number: A0814236A

PATIENT
  Age: 79 Year
  Sex: Female

DRUGS (2)
  1. TYKERB [Suspect]
     Indication: DRUG USE FOR UNKNOWN INDICATION
     Route: 065
     Dates: start: 20091001, end: 20091010
  2. XELODA [Concomitant]

REACTIONS (2)
  - CONFUSIONAL STATE [None]
  - DIARRHOEA [None]
